FAERS Safety Report 23721402 (Version 1)
Quarter: 2024Q2

REPORT INFORMATION
  Report Type: Spontaneous
  Country: CA (occurrence: CA)
  Receive Date: 20240409
  Receipt Date: 20240409
  Transmission Date: 20240716
  Serious: Yes (Other)
  Sender: FDA-Public Use
  Company Number: CA-SANDOZ-SDZ2024CA037158

PATIENT
  Age: 54 Year
  Sex: Female

DRUGS (1)
  1. TIMOLOL MALEATE [Suspect]
     Active Substance: TIMOLOL MALEATE
     Indication: Intraocular pressure test
     Dosage: UNK, QD
     Route: 047

REACTIONS (4)
  - Blindness transient [Recovered/Resolved]
  - Eye pruritus [Recovered/Resolved]
  - Migraine [Recovered/Resolved]
  - Ocular hyperaemia [Recovered/Resolved]
